FAERS Safety Report 6589493-1 (Version None)
Quarter: 2010Q1

REPORT INFORMATION
  Report Type: 
  Country: None (occurrence: None)
  Receive Date: 20100212
  Receipt Date: 20100121
  Transmission Date: 20100710
  Serious: Yes (Hospitalization)
  Sender: FDA-Public Use
  Company Number: 2010000273

PATIENT
  Age: 68 Year
  Sex: Female

DRUGS (9)
  1. ERLOTINIB  (ERLOTINIB) (TABLET) (ERLOTINIB) [Suspect]
     Indication: NON-SMALL CELL LUNG CANCER METASTATIC
     Dosage: (150 MG, QD), ORAL
     Route: 048
     Dates: start: 20091214, end: 20100111
  2. OXYCONTIN [Concomitant]
  3. OXYCODONE HCL [Concomitant]
  4. ACETAMINOPHEN [Concomitant]
  5. NULYTELY [Concomitant]
  6. MAXOLON [Concomitant]
  7. NAFTIDROFURYL OXALATE (NAFTIDROFURYL OXALATE) [Concomitant]
  8. FORTISIP (FORTISIP) [Concomitant]
  9. DEXAMETHASONE TAB [Concomitant]

REACTIONS (4)
  - DECREASED APPETITE [None]
  - FACE OEDEMA [None]
  - GENERAL PHYSICAL HEALTH DETERIORATION [None]
  - RASH [None]
